FAERS Safety Report 14881859 (Version 2)
Quarter: 2018Q2

REPORT INFORMATION
  Report Type: Spontaneous
  Country: AR (occurrence: AR)
  Receive Date: 20180511
  Receipt Date: 20180515
  Transmission Date: 20180711
  Serious: No
  Sender: FDA-Public Use
  Company Number: AR-PFIZER INC-2018190057

PATIENT
  Age: 52 Year
  Sex: Female

DRUGS (1)
  1. IBRANCE [Suspect]
     Active Substance: PALBOCICLIB
     Indication: BREAST CANCER METASTATIC
     Dosage: 125 MG, DAILY (SCHEME 3X1)
     Dates: start: 20180313

REACTIONS (7)
  - Balance disorder [Unknown]
  - Hypoaesthesia [Unknown]
  - Dysphagia [Unknown]
  - Neoplasm progression [Unknown]
  - Fatigue [Unknown]
  - Muscle contracture [Unknown]
  - Gait disturbance [Unknown]
